FAERS Safety Report 4285673-9 (Version None)
Quarter: 2004Q1

REPORT INFORMATION
  Report Type: 
  Country: None (occurrence: None)
  Receive Date: 20040203
  Receipt Date: 20040127
  Transmission Date: 20041129
  Serious: Yes (Hospitalization)
  Sender: FDA-Public Use
  Company Number: 22902

PATIENT
  Age: 65 Year
  Sex: Male

DRUGS (5)
  1. NITROGLYCERIN [Suspect]
     Dosage: 10 MG (10MG, 1 IN 1 DAY (S))
     Route: 062
  2. TRANDATE [Suspect]
     Dosage: 400 MG (2 IN 1 DAY (S)); ORAL
     Route: 048
  3. ALLOPURINOL [Concomitant]
     Dosage: 40 MG (40 MG, 1 IN 1 DAY (S)); ORAL
     Route: 048
  4. ASPEGIC 1000 [Suspect]
     Dosage: 250 MG (250 MG, 1 IN 1 DAY (S)); ORAL
     Route: 048
  5. FONZYLANE (FUFLOMEDIL HYDROCHLORIDE) [Suspect]
     Dosage: 600 MG (300 MG, 2 IN 1 DAY (S)), ORAL
     Route: 048

REACTIONS (6)
  - BLOOD CREATININE INCREASED [None]
  - BLOOD PRESSURE INCREASED [None]
  - CEREBRAL HAEMATOMA [None]
  - FALL [None]
  - HAEMORRHAGIC STROKE [None]
  - HEMIPLEGIA [None]
